FAERS Safety Report 12920715 (Version 3)
Quarter: 2016Q4

REPORT INFORMATION
  Report Type: Spontaneous
  Country: US (occurrence: US)
  Receive Date: 20161107
  Receipt Date: 20161221
  Transmission Date: 20170207
  Serious: Yes (Other)
  Sender: FDA-Public Use
  Company Number: US-BRISTOL-MYERS SQUIBB COMPANY-BMS-2016-093955

PATIENT
  Age: 68 Year
  Sex: Female

DRUGS (2)
  1. ABILIFY [Suspect]
     Active Substance: ARIPIPRAZOLE
     Indication: DEPRESSION
     Dosage: 5 MG, QD
     Route: 048
  2. ABILIFY [Suspect]
     Active Substance: ARIPIPRAZOLE
     Indication: PRODUCT USED FOR UNKNOWN INDICATION
     Dosage: 10 MG, QD
     Route: 048
     Dates: end: 201611

REACTIONS (10)
  - Dementia Alzheimer^s type [Not Recovered/Not Resolved]
  - Cancer surgery [Unknown]
  - Transient ischaemic attack [Unknown]
  - Off label use [Unknown]
  - Stent placement [Unknown]
  - Confusional state [Not Recovered/Not Resolved]
  - Emotional disorder [Not Recovered/Not Resolved]
  - Internal haemorrhage [Unknown]
  - Depression [Unknown]
  - Neoplasm malignant [Unknown]

NARRATIVE: CASE EVENT DATE: 2013
